FAERS Safety Report 13614727 (Version 2)
Quarter: 2017Q2

REPORT INFORMATION
  Report Type: Spontaneous
  Country: US (occurrence: US)
  Receive Date: 20170606
  Receipt Date: 20170630
  Transmission Date: 20170830
  Serious: No
  Sender: FDA-Public Use
  Company Number: US-BIOFRONTERA-000378

PATIENT
  Age: 55 Year
  Sex: Male

DRUGS (4)
  1. FISH OIL [Concomitant]
     Active Substance: FISH OIL
  2. ASPIRIN. [Concomitant]
     Active Substance: ASPIRIN
     Route: 048
  3. MULTIVITAMINS [Concomitant]
     Active Substance: VITAMINS
  4. AMELUZ [Suspect]
     Active Substance: AMINOLEVULINIC ACID HYDROCHLORIDE
     Indication: ACTINIC KERATOSIS
     Route: 061
     Dates: start: 20170519, end: 20170519

REACTIONS (2)
  - Therapy cessation [Recovered/Resolved]
  - Application site erythema [Recovered/Resolved]

NARRATIVE: CASE EVENT DATE: 20170519
